FAERS Safety Report 24765667 (Version 1)
Quarter: 2024Q4

REPORT INFORMATION
  Report Type: Spontaneous
  Country: US (occurrence: US)
  Receive Date: 20241223
  Receipt Date: 20241223
  Transmission Date: 20250115
  Serious: No
  Sender: SUNOVION
  Company Number: US-SMPA-2024SPA005784AA

PATIENT

DRUGS (12)
  1. ORGOVYX [Suspect]
     Active Substance: RELUGOLIX
     Indication: Prostate cancer
     Dosage: 120 MG
     Route: 048
     Dates: start: 202410
  2. LISINOPRIL [Concomitant]
     Active Substance: LISINOPRIL
     Dosage: 40 MG IN THE MORNING AND 20 MG AT NOON
  3. FLECAINIDE [Concomitant]
     Active Substance: FLECAINIDE
     Dosage: 50 MG IN THE MORNING AND 100 MG AT NIGHT
  4. XARELTO [Concomitant]
     Active Substance: RIVAROXABAN
     Dosage: 10 UNK
  5. AMLODIPINE [Concomitant]
     Active Substance: AMLODIPINE BESYLATE
     Dosage: 5 MG, HS
  6. VITAMIN B3 [Concomitant]
     Active Substance: NIACIN
     Dosage: 5000 IU, QD
  7. COENZYME Q10 [Concomitant]
     Active Substance: DIETARY SUPPLEMENT\UBIDECARENONE
     Dosage: UNK, QD
  8. OCUVITE [Concomitant]
     Active Substance: VITAMINS
     Dosage: UNK, QD
  9. REPATHA [Concomitant]
     Active Substance: EVOLOCUMAB
     Dosage: 140 MG INJECTION EVERY TWO WEEKS
  10. B12 [Concomitant]
  11. SILDENAFIL [Concomitant]
     Active Substance: SILDENAFIL
  12. VIAGRA [Concomitant]
     Active Substance: SILDENAFIL CITRATE
     Dosage: AS NEEDED

REACTIONS (4)
  - Hypersensitivity [Unknown]
  - Middle insomnia [Unknown]
  - Myalgia [Unknown]
  - Arthralgia [Unknown]
